FAERS Safety Report 13677125 (Version 1)
Quarter: 2017Q2

REPORT INFORMATION
  Report Type: Spontaneous
  Country: DE (occurrence: DE)
  Receive Date: 20170622
  Receipt Date: 20170622
  Transmission Date: 20170830
  Serious: Yes (Other)
  Sender: FDA-Public Use
  Company Number: DE-AUROBINDO-AUR-APL-2017-35907

PATIENT
  Age: 1 Day
  Sex: Female
  Weight: 2.68 kg

DRUGS (8)
  1. PROPESS VF [Concomitant]
     Indication: LABOUR INDUCTION
     Dosage: UNK
     Route: 064
     Dates: start: 20170126, end: 20170126
  2. FOLIO                              /00349401/ [Concomitant]
     Active Substance: CYANOCOBALAMIN\FOLIC ACID
     Indication: PROPHYLAXIS OF NEURAL TUBE DEFECT
     Dosage: 0.4 MG, DAILY
     Route: 064
     Dates: start: 20160421, end: 20160819
  3. HUMALOG [Concomitant]
     Active Substance: INSULIN LISPRO
     Indication: GESTATIONAL DIABETES
     Route: 064
  4. VENLAFAXIN [Concomitant]
     Active Substance: VENLAFAXINE HYDROCHLORIDE
     Indication: DEPRESSION
     Dosage: 150 [MG/D ]/?TRANSPLACENTAL EVERY SECOND DAY,INITIAL 150 MG/D, THEN 75 MG/D
     Route: 064
  5. MIRTAZAPINE 15MG [Suspect]
     Active Substance: MIRTAZAPINE
     Indication: DEPRESSION
     Dosage: 15 MG, DAILY
     Route: 064
  6. ABASAGLAR [Concomitant]
     Active Substance: INSULIN GLARGINE
     Indication: GESTATIONAL DIABETES
     Dosage: 10 IU, DAILY
     Route: 064
  7. INFLUSPLIT [Concomitant]
     Active Substance: INFLUENZA VIRUS VACCINE
     Indication: IMMUNISATION
     Dosage: UNK
     Route: 064
     Dates: start: 20161116, end: 20161116
  8. VOMEX A [Concomitant]
     Active Substance: DIMENHYDRINATE
     Indication: VOMITING IN PREGNANCY
     Dosage: TWICE L.V. AND DIMENHYDRINATE ORALLY ON DEMAND
     Route: 064

REACTIONS (2)
  - Small for dates baby [Unknown]
  - Foetal exposure during pregnancy [Unknown]

NARRATIVE: CASE EVENT DATE: 20170127
